FAERS Safety Report 16197831 (Version 1)
Quarter: 2019Q2

REPORT INFORMATION
  Report Type: Spontaneous
  Country: US (occurrence: US)
  Receive Date: 20190414
  Receipt Date: 20190414
  Transmission Date: 20190711
  Serious: No
  Sender: FDA-Public Use
  Company Number: None

PATIENT
  Age: 28 Year
  Sex: Female
  Weight: 52.2 kg

DRUGS (1)
  1. EMGALITY [Suspect]
     Active Substance: GALCANEZUMAB-GNLM
     Indication: MIGRAINE
     Dosage: ?          QUANTITY:1 INJECTION(S);OTHER FREQUENCY:ONCE A MONTH;OTHER ROUTE:INJECTION ON THIGH, BELLY, ARM?
     Dates: start: 20181210, end: 20190310

REACTIONS (4)
  - Dehydration [None]
  - Abnormal dreams [None]
  - Pruritus [None]
  - Thirst [None]

NARRATIVE: CASE EVENT DATE: 20190110
